FAERS Safety Report 7209377-5 (Version None)
Quarter: 2011Q1

REPORT INFORMATION
  Report Type: 
  Country: None (occurrence: None)
  Receive Date: 20110104
  Receipt Date: 20101227
  Transmission Date: 20110831
  Serious: Yes (Hospitalization, Other)
  Sender: FDA-Public Use
  Company Number: US-TEVA-261323USA

PATIENT
  Age: 10 Year
  Sex: Male

DRUGS (1)
  1. BACTRIM [Suspect]
     Indication: ANTIFUNGAL PROPHYLAXIS

REACTIONS (1)
  - HAEMOLYTIC ANAEMIA [None]
